FAERS Safety Report 9311407 (Version 1)
Quarter: 2013Q2

REPORT INFORMATION
  Report Type: Spontaneous
  Country: US (occurrence: US)
  Receive Date: 20130528
  Receipt Date: 20130528
  Transmission Date: 20140414
  Serious: Yes (Hospitalization)
  Sender: FDA-Public Use
  Company Number: US-BAYER-2013-064518

PATIENT
  Age: 24 Year
  Sex: Female
  Weight: 73.02 kg

DRUGS (9)
  1. YAZ [Suspect]
     Indication: CONTRACEPTION
  2. YAZ [Suspect]
     Indication: ALOPECIA
  3. COMPAZINE [Concomitant]
     Indication: NAUSEA
     Dosage: 10 MG, EVERY 8 HOURS AS NEEDED
     Route: 048
  4. REGLAN [Concomitant]
     Indication: ABDOMINAL DISCOMFORT
     Dosage: 10 MG, 30 MINS PRIOR TO MEALS
  5. ONDANSETRON [Concomitant]
     Dosage: 8 MG, TWICE A DAY FOR 3 DAYS
     Route: 048
  6. PROCHLORPERAZINE [Concomitant]
     Dosage: 10 MG, EVERY 8 HOURS FOR 3 DAYS
     Route: 048
  7. DEXAMETHASONE [Concomitant]
     Dosage: 4 MG, TAKE TWICE A DAY FOR 3 DAYS
     Route: 048
  8. PROMETHAZINE [Concomitant]
     Dosage: 25 MG, EVERY 6 HOURS AS NEEDED
     Route: 048
  9. MULTIVITAMINS [Concomitant]

REACTIONS (1)
  - Pulmonary embolism [Recovered/Resolved]
